FAERS Safety Report 23869514 (Version 1)
Quarter: 2024Q2

REPORT INFORMATION
  Report Type: Report from Study
  Country: US (occurrence: US)
  Receive Date: 20240517
  Receipt Date: 20240517
  Transmission Date: 20240716
  Serious: Yes (Hospitalization, Other)
  Sender: FDA-Public Use
  Company Number: US-TAKEDA-2024TUS040983

PATIENT
  Sex: Male

DRUGS (3)
  1. BRIGATINIB [Suspect]
     Active Substance: BRIGATINIB
     Indication: Lung neoplasm malignant
     Dosage: 90 MILLIGRAM, QD
     Route: 048
     Dates: start: 20240420
  2. BRIGATINIB [Suspect]
     Active Substance: BRIGATINIB
     Dosage: 180 MILLIGRAM, QD
     Route: 048
  3. BRIGATINIB [Suspect]
     Active Substance: BRIGATINIB
     Dosage: 180 MILLIGRAM, QD
     Route: 048
     Dates: start: 202404

REACTIONS (8)
  - Lung neoplasm malignant [Unknown]
  - Pneumonia [Recovering/Resolving]
  - Nasopharyngitis [Unknown]
  - Dizziness postural [Unknown]
  - Epistaxis [Unknown]
  - Lung disorder [Unknown]
  - Headache [Unknown]
  - Fatigue [Recovering/Resolving]
